FAERS Safety Report 5101914-X (Version None)
Quarter: 2006Q3

REPORT INFORMATION
  Report Type: 
  Country: None (occurrence: None)
  Receive Date: 20060907
  Receipt Date: 20060823
  Transmission Date: 20061208
  Serious: Yes (Death)
  Sender: FDA-Public Use
  Company Number: 2005S1005495

PATIENT
  Age: 55 Year
  Sex: Male

DRUGS (9)
  1. FENTANYL TRANSDERMAL SYSTEM [Suspect]
     Indication: CANCER PAIN
     Dosage: 25 MCG/HR; Q3D; TDER
     Route: 062
     Dates: start: 20050513, end: 20050516
  2. FENTANYL TRANSDERMAL SYSTEM [Suspect]
     Indication: CANCER PAIN
     Dosage: 50 MCG/HR; Q3D; TDER
     Route: 062
     Dates: start: 20050513, end: 20050521
  3. MORPHINE SULFATE INJ [Concomitant]
  4. LORAZEPAM [Concomitant]
  5. PROCHLORPERAZINE EDISYLATE [Concomitant]
  6. DOCUSATE SODIUM/ CASANTHRANOL [Concomitant]
  7. FLUCONAZOLE [Concomitant]
  8. LISINOPRIL [Concomitant]
  9. GRADE 1 MOUTH RINSE [Concomitant]

REACTIONS (14)
  - ASTHENIA [None]
  - BLOOD PRESSURE SYSTOLIC DECREASED [None]
  - CARDIAC ARREST [None]
  - CARDIOMEGALY [None]
  - DEHYDRATION [None]
  - DISORIENTATION [None]
  - GENERAL PHYSICAL HEALTH DETERIORATION [None]
  - LETHARGY [None]
  - LOSS OF CONSCIOUSNESS [None]
  - OVERDOSE [None]
  - RESPIRATORY DEPRESSION [None]
  - RESPIRATORY FAILURE [None]
  - SOMNOLENCE [None]
  - TACHYCARDIA [None]
